FAERS Safety Report 17310746 (Version 1)
Quarter: 2020Q1

REPORT INFORMATION
  Report Type: Spontaneous
  Country: US (occurrence: US)
  Receive Date: 20200123
  Receipt Date: 20200123
  Transmission Date: 20200409
  Serious: No
  Sender: FDA-Public Use
  Company Number: US-ROCHE-2261047

PATIENT

DRUGS (5)
  1. METHOTREXATE. [Suspect]
     Active Substance: METHOTREXATE
     Indication: RHEUMATOID ARTHRITIS
     Route: 065
     Dates: start: 201406, end: 201501
  2. XELJANZ [Concomitant]
     Active Substance: TOFACITINIB CITRATE
     Route: 048
  3. ACTEMRA [Concomitant]
     Active Substance: TOCILIZUMAB
     Route: 065
     Dates: start: 201705, end: 201708
  4. ORENCIA [Concomitant]
     Active Substance: ABATACEPT
     Route: 065
     Dates: start: 201601, end: 201610
  5. RITUXAN [Suspect]
     Active Substance: RITUXIMAB
     Indication: RHEUMATOID ARTHRITIS
     Route: 065
     Dates: start: 201611, end: 201612

REACTIONS (2)
  - No adverse event [Unknown]
  - Drug ineffective [Unknown]
